FAERS Safety Report 9265249 (Version 1)
Quarter: 2013Q2

REPORT INFORMATION
  Report Type: Report from Study
  Country: JP (occurrence: JP)
  Receive Date: 20130501
  Receipt Date: 20130501
  Transmission Date: 20140414
  Serious: Yes (Other)
  Sender: FDA-Public Use
  Company Number: JP-VERTEX PHARMACEUTICALS INC-2013-005550

PATIENT
  Age: 53 Year
  Sex: Female

DRUGS (19)
  1. PRIMPERAN [Concomitant]
     Dosage: 5 MG, PRN
     Route: 048
     Dates: start: 20120423
  2. TAKEPRON [Concomitant]
     Dosage: 15 MG, QD
     Route: 048
     Dates: start: 20120507
  3. TAKEPRON [Concomitant]
     Dosage: 15 MG, PRN
     Route: 048
  4. CALONAL [Concomitant]
     Dosage: 400 MG, PRN
     Route: 048
     Dates: start: 20120507
  5. HIRUDOID [Concomitant]
     Dosage: 5 G, QD
     Route: 062
     Dates: start: 20120514, end: 20121130
  6. RESTAMIN [Concomitant]
     Dosage: 5 G, QD
     Route: 062
     Dates: start: 20120615, end: 20121130
  7. VX-950 (TELAPREVIR) [Suspect]
     Indication: CHRONIC HEPATITIS C
     Dosage: 2250 MG, QD
     Route: 048
     Dates: start: 20120403, end: 20120625
  8. REBETOL [Suspect]
     Indication: CHRONIC HEPATITIS C
     Dosage: 800 MG, QD
     Route: 048
     Dates: start: 20120403, end: 20120423
  9. REBETOL [Suspect]
     Dosage: 400 MG, QD
     Route: 048
     Dates: start: 20120424, end: 20120603
  10. REBETOL [Suspect]
     Dosage: 200 MG, QD
     Route: 048
     Dates: start: 20120604, end: 20120806
  11. REBETOL [Suspect]
     Dosage: 400 MG, QD
     Route: 048
     Dates: start: 20120807, end: 20120917
  12. PEGINTERFERON ALFA-2B [Suspect]
     Indication: CHRONIC HEPATITIS C
     Dosage: 1.5 ?G/KG, QW
     Route: 058
     Dates: start: 20120403, end: 20120618
  13. PEGINTERFERON ALFA-2B [Suspect]
     Dosage: 0.75 ?G/KG, QW
     Route: 058
     Dates: start: 20120625, end: 20120708
  14. PEGINTERFERON ALFA-2B [Suspect]
     Dosage: 1.5 ?G/KG, QW
     Route: 058
     Dates: start: 20120709, end: 20120910
  15. ZOLOFT [Concomitant]
     Dosage: 50 MG, QD
     Route: 048
  16. ADOAIR [Concomitant]
     Dosage: 250 ?G, QD
     Route: 055
  17. REFLEX [Concomitant]
     Dosage: 15 MG, QD
     Route: 048
  18. ALESION [Concomitant]
     Dosage: 10 MG, QD
     Route: 048
  19. ALESION [Concomitant]
     Dosage: 10 MG, QD
     Route: 048
     Dates: start: 20120423

REACTIONS (1)
  - Rheumatoid arthritis [Recovered/Resolved]
